FAERS Safety Report 12631689 (Version 2)
Quarter: 2016Q3

REPORT INFORMATION
  Report Type: Spontaneous
  Country: US (occurrence: US)
  Receive Date: 20160808
  Receipt Date: 20160808
  Transmission Date: 20161109
  Serious: No
  Sender: FDA-Public Use
  Company Number: US-BEH-2015055345

PATIENT
  Sex: Male
  Weight: 110 kg

DRUGS (44)
  1. DIPHENHYDRAMINE. [Concomitant]
     Active Substance: DIPHENHYDRAMINE
  2. METAMUCIL [Concomitant]
     Active Substance: PLANTAGO SEED
  3. FLAGYL [Concomitant]
     Active Substance: METRONIDAZOLE\METRONIDAZOLE HYDROCHLORIDE
  4. SYNTHROID [Concomitant]
     Active Substance: LEVOTHYROXINE SODIUM
  5. MORPHINE [Concomitant]
     Active Substance: MORPHINE
  6. ASPIRIN. [Concomitant]
     Active Substance: ASPIRIN
  7. FENTANYL-NS [Concomitant]
  8. LANTUS [Concomitant]
     Active Substance: INSULIN GLARGINE
  9. REQUIP [Concomitant]
     Active Substance: ROPINIROLE HYDROCHLORIDE
  10. ADVAIR HFA [Concomitant]
     Active Substance: FLUTICASONE PROPIONATE\SALMETEROL XINAFOATE
  11. ZOLOFT [Concomitant]
     Active Substance: SERTRALINE HYDROCHLORIDE
  12. BUSPIRONE [Concomitant]
     Active Substance: BUSPIRONE HYDROCHLORIDE
  13. IBUPROFEN. [Concomitant]
     Active Substance: IBUPROFEN
  14. LIDOCAINE/PRILOCAINE [Concomitant]
     Active Substance: LIDOCAINE\PRILOCAINE
  15. LOSARTAN. [Concomitant]
     Active Substance: LOSARTAN
  16. ZOFRAN [Concomitant]
     Active Substance: ONDANSETRON HYDROCHLORIDE
  17. ALBUTEROL. [Concomitant]
     Active Substance: ALBUTEROL
  18. HIZENTRA [Suspect]
     Active Substance: HUMAN IMMUNOGLOBULIN G
     Route: 058
  19. CEPHALEXIN. [Concomitant]
     Active Substance: CEPHALEXIN
  20. ALLOPURINOL. [Concomitant]
     Active Substance: ALLOPURINOL
  21. MOBIC [Concomitant]
     Active Substance: MELOXICAM
  22. TYLENOL WITH CODEINE [Concomitant]
     Active Substance: ACETAMINOPHEN\CODEINE PHOSPHATE
  23. METFORMIN [Concomitant]
     Active Substance: METFORMIN HYDROCHLORIDE
  24. CLONIDINE. [Concomitant]
     Active Substance: CLONIDINE
  25. PRAVACHOL [Concomitant]
     Active Substance: PRAVASTATIN SODIUM
  26. ONE A DAYS MENS TABLET [Concomitant]
  27. WARFARIN [Concomitant]
     Active Substance: WARFARIN
  28. PRINIVIL [Concomitant]
     Active Substance: LISINOPRIL
  29. HIZENTRA [Suspect]
     Active Substance: HUMAN IMMUNOGLOBULIN G
     Route: 058
  30. CIPROFLOXACIN. [Concomitant]
     Active Substance: CIPROFLOXACIN
  31. LASIX [Concomitant]
     Active Substance: FUROSEMIDE
  32. AMBIEN [Concomitant]
     Active Substance: ZOLPIDEM TARTRATE
  33. EPIPEN [Concomitant]
     Active Substance: EPINEPHRINE
  34. RANITIDINE. [Concomitant]
     Active Substance: RANITIDINE
  35. ACETAMINOPHEN. [Concomitant]
     Active Substance: ACETAMINOPHEN
  36. FERROUS SULFATE. [Concomitant]
     Active Substance: FERROUS SULFATE
  37. LEVOFLOXACIN. [Concomitant]
     Active Substance: LEVOFLOXACIN
  38. HIZENTRA [Suspect]
     Active Substance: HUMAN IMMUNOGLOBULIN G
     Route: 058
  39. HIZENTRA [Suspect]
     Active Substance: HUMAN IMMUNOGLOBULIN G
     Indication: IMMUNODEFICIENCY COMMON VARIABLE
     Route: 058
  40. VITAMIN B12 [Concomitant]
     Active Substance: CYANOCOBALAMIN
  41. GLIPIZIDE. [Concomitant]
     Active Substance: GLIPIZIDE
  42. OXYGEN. [Concomitant]
     Active Substance: OXYGEN
  43. XANAX [Concomitant]
     Active Substance: ALPRAZOLAM
  44. ALDACTONE [Concomitant]
     Active Substance: SPIRONOLACTONE

REACTIONS (1)
  - Sinusitis [Unknown]
